FAERS Safety Report 18405526 (Version 1)
Quarter: 2020Q4

REPORT INFORMATION
  Report Type: Report from Study
  Country: US (occurrence: US)
  Receive Date: 20201020
  Receipt Date: 20201020
  Transmission Date: 20210114
  Serious: Yes (Death)
  Sender: FDA-Public Use
  Company Number: US-PFIZER INC-2020400363

PATIENT

DRUGS (3)
  1. MELPHALAN. [Suspect]
     Active Substance: MELPHALAN
     Indication: NEUROBLASTOMA
     Dosage: UNK, CYCLIC (RAPID INTRAVENOUS BOLUS ON DAYS -7 THROUGH -5)
     Route: 040
  2. CARBOPLATIN. [Suspect]
     Active Substance: CARBOPLATIN
     Indication: NEUROBLASTOMA
     Dosage: UNK, CYCLIC (96 HOUR INFUSION ON DAYS -7 TO -4
     Route: 042
  3. ETOPOSIDE. [Suspect]
     Active Substance: ETOPOSIDE
     Indication: NEUROBLASTOMA
     Dosage: UNK, CYCLIC  (96 HOUR INFUSION ON DAYS -7 TO -4)
     Route: 042

REACTIONS (3)
  - Pulmonary fibrosis [Fatal]
  - Venoocclusive liver disease [Fatal]
  - Hepatic function abnormal [Fatal]
